FAERS Safety Report 8472249-2 (Version None)
Quarter: 2012Q2

REPORT INFORMATION
  Report Type: 
  Country: None (occurrence: None)
  Receive Date: 20120627
  Receipt Date: 20120619
  Transmission Date: 20120825
  Serious: Yes (Other)
  Sender: FDA-Public Use
  Company Number: US-JNJFOC-20120611439

PATIENT
  Age: 62 Year
  Sex: Male

DRUGS (3)
  1. RADIATION THERAPY NOS [Suspect]
     Indication: SARCOMA
     Route: 065
  2. DOXORUBICIN HYDROCHLORIDE [Suspect]
     Indication: SARCOMA
     Dosage: 4 CYCLES
     Route: 042
  3. IFOSFAMIDE [Suspect]
     Indication: SARCOMA
     Dosage: 4 CYCLES
     Route: 065

REACTIONS (2)
  - OFF LABEL USE [None]
  - ACUTE LYMPHOCYTIC LEUKAEMIA [None]
